FAERS Safety Report 4266344-1 (Version None)
Quarter: 2004Q1

REPORT INFORMATION
  Report Type: 
  Country: None (occurrence: None)
  Receive Date: 20040106
  Receipt Date: 20031224
  Transmission Date: 20041129
  Serious: Yes (Life-Threatening, Hospitalization, Other)
  Sender: FDA-Public Use
  Company Number: 2003-BP-10838NB

PATIENT
  Age: 84 Year
  Sex: Female

DRUGS (3)
  1. MOBIC [Suspect]
     Indication: BACK PAIN
     Dosage: 1 ANZ PO
     Route: 048
     Dates: start: 20030601, end: 20031215
  2. GASTER D (TA) [Suspect]
     Dosage: PO
     Route: 048
  3. ASPIRIN [Suspect]
     Dosage: PO
     Route: 048

REACTIONS (1)
  - EOSINOPHILIC PNEUMONIA [None]
